FAERS Safety Report 6155087-5 (Version None)
Quarter: 2009Q2

REPORT INFORMATION
  Report Type: 
  Country: None (occurrence: None)
  Receive Date: 20090410
  Receipt Date: 20090402
  Transmission Date: 20091009
  Serious: No
  Sender: FDA-Public Use
  Company Number: THYR-1000133

PATIENT
  Age: 66 Year
  Sex: Female

DRUGS (1)
  1. THYROGEN [Suspect]
     Indication: DIAGNOSTIC PROCEDURE
     Dates: start: 20080901, end: 20080901

REACTIONS (2)
  - DACRYOSTENOSIS ACQUIRED [None]
  - EYE ABSCESS [None]
